FAERS Safety Report 20883754 (Version 1)
Quarter: 2022Q2

REPORT INFORMATION
  Report Type: Spontaneous
  Country: US (occurrence: None)
  Receive Date: 20220526
  Receipt Date: 20220526
  Transmission Date: 20220721
  Serious: No
  Sender: FDA-Public Use
  Company Number: None

PATIENT
  Age: 27 Year
  Sex: Female
  Weight: 76.5 kg

DRUGS (2)
  1. ZICAM EXTREME CONGESTION RELIEF (OXYMETAZOLINE HYDROCHLORIDE) [Suspect]
     Active Substance: OXYMETAZOLINE HYDROCHLORIDE
     Indication: Sinus congestion
     Dates: start: 20220526, end: 20220526
  2. ZICAM EXTREME CONGESTION RELIEF (OXYMETAZOLINE HYDROCHLORIDE) [Suspect]
     Active Substance: OXYMETAZOLINE HYDROCHLORIDE
     Indication: Paranasal sinus discomfort

REACTIONS (1)
  - Migraine [None]

NARRATIVE: CASE EVENT DATE: 20220526
